FAERS Safety Report 13814551 (Version 1)
Quarter: 2017Q3

REPORT INFORMATION
  Report Type: Spontaneous
  Country: GB (occurrence: GB)
  Receive Date: 20170731
  Receipt Date: 20170731
  Transmission Date: 20171127
  Serious: Yes (Disabling)
  Sender: FDA-Public Use
  Company Number: GB-TEVA-789496ACC

PATIENT
  Age: 67 Year
  Sex: Female
  Weight: 64 kg

DRUGS (5)
  1. NITROFURANTOIN. [Suspect]
     Active Substance: NITROFURANTOIN
     Indication: URINARY TRACT INFECTION
     Dosage: 100 MILLIGRAM DAILY;
     Route: 048
     Dates: start: 20140707, end: 20160613
  2. OMEPRAZOLE SODIUM [Concomitant]
     Active Substance: OMEPRAZOLE SODIUM
  3. LEVOTHYROXINE SODIUM. [Concomitant]
     Active Substance: LEVOTHYROXINE SODIUM
  4. TOVIAZ [Concomitant]
     Active Substance: FESOTERODINE FUMARATE
  5. SIMVASTATIN. [Concomitant]
     Active Substance: SIMVASTATIN

REACTIONS (4)
  - Pulmonary fibrosis [Recovered/Resolved with Sequelae]
  - Lupus-like syndrome [Recovered/Resolved with Sequelae]
  - Liver function test increased [Recovered/Resolved with Sequelae]
  - Antineutrophil cytoplasmic antibody positive [Recovered/Resolved]

NARRATIVE: CASE EVENT DATE: 20160426
